FAERS Safety Report 7047519-5 (Version None)
Quarter: 2010Q4

REPORT INFORMATION
  Report Type: 
  Country: None (occurrence: None)
  Receive Date: 20101015
  Receipt Date: 20101005
  Transmission Date: 20110411
  Serious: Yes (Other)
  Sender: FDA-Public Use
  Company Number: JP-PFIZER INC-2010125782

PATIENT
  Sex: Female

DRUGS (2)
  1. SALAZOPYRIN [Suspect]
     Dosage: 3 DF, UNK
     Route: 048
  2. SALAZOPYRIN [Suspect]
     Dosage: 6 DF, UNK
     Route: 048

REACTIONS (3)
  - CHROMATURIA [None]
  - NAUSEA [None]
  - VAGINAL DISCHARGE [None]
